FAERS Safety Report 21720239 (Version 2)
Quarter: 2023Q2

REPORT INFORMATION
  Report Type: Other
  Country: US (occurrence: None)
  Receive Date: 20221213
  Receipt Date: 20230608
  Transmission Date: 20230722
  Serious: No
  Sender: FDA-Public Use
  Company Number: US-ROCHE-3235110

PATIENT
  Age: 62 Year
  Sex: Female

DRUGS (2)
  1. OCREVUS [Suspect]
     Active Substance: OCRELIZUMAB
     Indication: Relapsing multiple sclerosis
     Dosage: NO, INFUSE 600MG INTRAVENOUSLY EVERY 5 MONTHS, DATE OF PREVIOUS INFUSION: 21/JAN/2022.
     Route: 042
     Dates: start: 2018
  2. OCREVUS [Suspect]
     Active Substance: OCRELIZUMAB
     Route: 042
     Dates: start: 20190411

REACTIONS (7)
  - COVID-19 [Unknown]
  - Immunodeficiency [Not Recovered/Not Resolved]
  - Sinusitis [Not Recovered/Not Resolved]
  - Alopecia [Not Recovered/Not Resolved]
  - Off label use [Unknown]
  - Pneumonia [Unknown]
  - Thrombosis [Unknown]

NARRATIVE: CASE EVENT DATE: 20220101
